FAERS Safety Report 14313608 (Version 1)
Quarter: 2017Q4

REPORT INFORMATION
  Report Type: Spontaneous
  Country: IT (occurrence: IT)
  Receive Date: 20171221
  Receipt Date: 20171221
  Transmission Date: 20180321
  Serious: Yes (Other)
  Sender: FDA-Public Use
  Company Number: IT-CIPLA LTD.-2016IT18696

PATIENT

DRUGS (4)
  1. TOPIRAMATE. [Interacting]
     Active Substance: TOPIRAMATE
     Indication: MIGRAINE
     Dosage: 25 MG PER DAY
     Route: 065
  2. CITALOPRAM [Suspect]
     Active Substance: CITALOPRAM HYDROBROMIDE
     Indication: DEPRESSION
     Dosage: 20 MG, (1 TABLET/DAY) FOR TWO MONTHS
     Route: 065
  3. TOPIRAMATE. [Interacting]
     Active Substance: TOPIRAMATE
     Dosage: INCREASE THE DOSING OF THE DRUG OF 25 MG/DAY EVERY 15 DAYS
     Route: 065
  4. TOPIRAMATE. [Interacting]
     Active Substance: TOPIRAMATE
     Dosage: 100 MG, UNK
     Route: 065

REACTIONS (3)
  - Drug interaction [Unknown]
  - Myopia [Recovered/Resolved]
  - Angle closure glaucoma [Recovered/Resolved]
